FAERS Safety Report 8499901-7 (Version None)
Quarter: 2012Q3

REPORT INFORMATION
  Report Type: 
  Country: None (occurrence: None)
  Receive Date: 20120710
  Receipt Date: 20120705
  Transmission Date: 20120928
  Serious: Yes (Hospitalization)
  Sender: FDA-Public Use
  Company Number: PHHY2012JP058483

PATIENT
  Age: 99 Year
  Sex: Female

DRUGS (4)
  1. EXELON [Suspect]
     Indication: DEMENTIA ALZHEIMER'S TYPE
     Dosage: 18 MG DAILY
     Route: 062
  2. YOKUKAN-SAN [Concomitant]
     Route: 048
  3. CALCIUM ANTAGONISTS [Concomitant]
  4. TEGRETOL [Suspect]
     Indication: AGITATION

REACTIONS (2)
  - TOXIC EPIDERMAL NECROLYSIS [None]
  - SKIN OEDEMA [None]
